FAERS Safety Report 10640521 (Version 1)
Quarter: 2014Q4

REPORT INFORMATION
  Report Type: Spontaneous
  Country: US (occurrence: None)
  Receive Date: 20141208
  Receipt Date: 20141208
  Transmission Date: 20150529
  Serious: No
  Sender: FDA-Public Use
  Company Number: None

PATIENT
  Age: 58 Year
  Sex: Female
  Weight: 65.77 kg

DRUGS (1)
  1. RIZATRIPTAN [Suspect]
     Active Substance: RIZATRIPTAN
     Indication: MIGRAINE
     Dosage: 9 PILLS
     Route: 048
     Dates: start: 20141205, end: 20141205

REACTIONS (4)
  - Dyspepsia [None]
  - Gastrointestinal mucosal disorder [None]
  - Product quality issue [None]
  - Throat irritation [None]

NARRATIVE: CASE EVENT DATE: 20141205
